FAERS Safety Report 7118378-7 (Version None)
Quarter: 2010Q4

REPORT INFORMATION
  Report Type: 
  Country: None (occurrence: None)
  Receive Date: 20101123
  Receipt Date: 20101115
  Transmission Date: 20110411
  Serious: Yes (Other)
  Sender: FDA-Public Use
  Company Number: US-JNJFOC-20101105137

PATIENT
  Sex: Female
  Weight: 113.4 kg

DRUGS (16)
  1. NUCYNTA [Suspect]
     Indication: PAIN
     Dosage: EVERY 6 HOURS AS NEEDED
     Route: 048
  2. NUCYNTA [Suspect]
     Indication: SPINAL COLUMN STENOSIS
     Dosage: EVERY 6 HOURS AS NEEDED
     Route: 048
  3. MELOXICAM [Suspect]
     Indication: ANTIINFLAMMATORY THERAPY
     Dosage: ONCE A DAY
     Route: 048
  4. PLAVIX [Suspect]
     Indication: ANTIPLATELET THERAPY
     Dosage: ONCE DAILY
     Route: 048
  5. ACTOS [Concomitant]
     Indication: DIABETES MELLITUS
     Dosage: ONCE A DAY
     Route: 048
  6. ALLOPURINOL [Concomitant]
     Indication: PROPHYLAXIS
     Dosage: ONCE DAILY
     Route: 048
  7. CRESTOR [Concomitant]
     Indication: BLOOD CHOLESTEROL INCREASED
     Dosage: ONCE DAILY
     Route: 048
  8. CYMBALTA [Concomitant]
     Indication: DIABETIC NEUROPATHY
     Dosage: ONCE DAILY
     Route: 048
  9. FUROSEMIDE [Concomitant]
     Indication: DIURETIC THERAPY
     Dosage: ONCE DAILY
     Route: 048
  10. LIDODERM [Concomitant]
     Indication: BACK PAIN
     Dosage: 2-3 TIMES DAILY
     Route: 061
  11. LISINOPRIL [Concomitant]
     Indication: BLOOD PRESSURE
     Dosage: ONCE A DAY
     Route: 048
  12. NADOLOL [Concomitant]
     Indication: HYPERTENSION
     Dosage: ONCE DAILY
     Route: 048
  13. NITROGLYCERIN [Concomitant]
     Indication: ANGINA PECTORIS
     Dosage: ONCE AS NEEDED, UPTO 3 TABLETS IN 15 MINUTES
     Route: 060
  14. TRICOR [Concomitant]
     Indication: BLOOD CHOLESTEROL INCREASED
     Dosage: ONCE DAILY
     Route: 048
  15. UROCIT-K [Concomitant]
     Indication: MINERAL SUPPLEMENTATION
     Dosage: ONCE DAILY
     Route: 048
  16. ASPIRIN [Concomitant]
     Indication: CARDIAC DISORDER
     Dosage: ONCE DAILY
     Route: 048

REACTIONS (4)
  - CONTUSION [None]
  - GASTROOESOPHAGEAL REFLUX DISEASE [None]
  - URINE OUTPUT DECREASED [None]
  - VOMITING [None]
